FAERS Safety Report 5084396-6 (Version None)
Quarter: 2006Q3

REPORT INFORMATION
  Report Type: 
  Country: None (occurrence: None)
  Receive Date: 20060817
  Receipt Date: 20060817
  Transmission Date: 20061208
  Serious: Yes (Other)
  Sender: FDA-Public Use
  Company Number: None

PATIENT
  Age: 54 Year
  Sex: Male
  Weight: 127.0072 kg

DRUGS (1)
  1. AVANDIA [Suspect]
     Indication: DIABETES MELLITUS
     Dosage: ONE DAY
     Dates: start: 20060603, end: 20060814

REACTIONS (3)
  - ABDOMINAL PAIN UPPER [None]
  - FATIGUE [None]
  - WEIGHT INCREASED [None]
